FAERS Safety Report 5919110-2 (Version None)
Quarter: 2008Q4

REPORT INFORMATION
  Report Type: 
  Country: None (occurrence: None)
  Receive Date: 20081015
  Receipt Date: 20080926
  Transmission Date: 20090506
  Serious: Yes (Other)
  Sender: FDA-Public Use
  Company Number: CA-JNJFOC-20080906648

PATIENT
  Sex: Female
  Weight: 60.5 kg

DRUGS (9)
  1. ACETAMINOPHEN [Suspect]
  2. ACETAMINOPHEN [Suspect]
     Indication: MUSCULOSKELETAL DISCOMFORT
  3. IBUPROFEN TABLETS [Suspect]
     Indication: PYREXIA
  4. SUNITINIB MALATE [Suspect]
     Route: 048
  5. SUNITINIB MALATE [Suspect]
     Indication: LYMPHOMA
     Route: 048
  6. LEVOFLOXACIN [Concomitant]
  7. RABEPRAZOLE SODIUM [Concomitant]
  8. OMEPRAZOLE [Concomitant]
  9. SENOKOT [Concomitant]

REACTIONS (1)
  - HEPATIC FAILURE [None]
